FAERS Safety Report 4464201-9 (Version None)
Quarter: 2004Q4

REPORT INFORMATION
  Report Type: 
  Country: None (occurrence: None)
  Receive Date: 20041001
  Receipt Date: 20040921
  Transmission Date: 20050328
  Serious: Yes (Death)
  Sender: FDA-Public Use
  Company Number: CA-GLAXOSMITHKLINE-A0527702A

PATIENT
  Age: 17 Year
  Sex: Male

DRUGS (1)
  1. PAXIL [Suspect]
     Indication: DRUG USE FOR UNKNOWN INDICATION
     Route: 065
     Dates: start: 20020101

REACTIONS (4)
  - AGGRESSION [None]
  - ALCOHOL POISONING [None]
  - COMPLETED SUICIDE [None]
  - FEELING ABNORMAL [None]
